FAERS Safety Report 9678292 (Version 1)
Quarter: 2013Q4

REPORT INFORMATION
  Report Type: Spontaneous
  Country: US (occurrence: US)
  Receive Date: 20131108
  Receipt Date: 20131108
  Transmission Date: 20140711
  Serious: No
  Sender: FDA-Public Use
  Company Number: US-BAYER-2013-136144

PATIENT
  Age: 59 Year
  Sex: Male
  Weight: 106.58 kg

DRUGS (1)
  1. ALEVE GELCAPS [Suspect]
     Indication: TOOTHACHE
     Dosage: 2 DF, EVERY 6 HOURS
     Route: 048
     Dates: start: 20131101, end: 20131104

REACTIONS (2)
  - Enuresis [None]
  - Extra dose administered [None]
